FAERS Safety Report 7404224-0 (Version None)
Quarter: 2011Q2

REPORT INFORMATION
  Report Type: 
  Country: None (occurrence: None)
  Receive Date: 20110408
  Receipt Date: 20110325
  Transmission Date: 20111010
  Serious: Yes (Death)
  Sender: FDA-Public Use
  Company Number: JP-CELGENEUS-087-21880-11022494

PATIENT
  Sex: Female

DRUGS (11)
  1. AMLODIN [Concomitant]
     Indication: HYPERTENSION
     Dosage: 5 MILLIGRAM
     Route: 048
     Dates: start: 20110118, end: 20110123
  2. REVLIMID [Suspect]
     Indication: MULTIPLE MYELOMA
     Dosage: 15 MILLIGRAM
     Route: 048
     Dates: start: 20110118, end: 20110122
  3. MAGMITT [Concomitant]
     Dosage: 990 MILLIGRAM
     Route: 048
     Dates: start: 20110118, end: 20110123
  4. DOXAZOSIN MESYLATE [Concomitant]
     Indication: HYPERTENSION
     Dosage: 2 MILLIGRAM
     Route: 048
     Dates: start: 20110118, end: 20110123
  5. LENADEX [Suspect]
     Indication: MULTIPLE MYELOMA
     Dosage: 20 MILLIGRAM
     Route: 048
     Dates: start: 20110118, end: 20110118
  6. EPADEL [Concomitant]
     Dosage: 1800 MILLIGRAM
     Route: 048
     Dates: start: 20110118, end: 20110123
  7. CARNACULIN [Concomitant]
     Indication: HYPERTENSION
     Dosage: 100 MILLIGRAM
     Route: 048
     Dates: start: 20110118, end: 20110123
  8. PARIET [Concomitant]
     Dosage: 10 MILLIGRAM
     Route: 048
     Dates: start: 20110118, end: 20110123
  9. ZYLORIC [Concomitant]
     Dosage: 100 MILLIGRAM
     Route: 048
     Dates: start: 20110118, end: 20110123
  10. MORPHINE HYDROCHLORIDE [Concomitant]
     Dosage: 10 MILLIGRAM
     Route: 058
     Dates: start: 20110125, end: 20110126
  11. MAXIPIME [Concomitant]
     Indication: PROPHYLAXIS
     Dosage: 2000 MILLIGRAM
     Route: 041
     Dates: start: 20110118, end: 20110123

REACTIONS (2)
  - INFLUENZA [None]
  - RENAL FAILURE [None]
